FAERS Safety Report 16921846 (Version 1)
Quarter: 2019Q4

REPORT INFORMATION
  Report Type: Spontaneous
  Country: US (occurrence: US)
  Receive Date: 20191015
  Receipt Date: 20191015
  Transmission Date: 20200122
  Serious: No
  Sender: FDA-Public Use
  Company Number: PHHY2019US227760

PATIENT
  Age: 62 Year
  Sex: Male

DRUGS (4)
  1. VANCOMYCIN [Suspect]
     Active Substance: VANCOMYCIN
     Indication: ANTIBIOTIC PROPHYLAXIS
  2. MEROPENEM. [Suspect]
     Active Substance: MEROPENEM
     Indication: RENAL TRANSPLANT
     Dosage: 1 G, Q8H FOR 2 WEEKS
     Route: 042
  3. MEROPENEM. [Suspect]
     Active Substance: MEROPENEM
     Indication: ANTIBIOTIC PROPHYLAXIS
  4. VANCOMYCIN [Suspect]
     Active Substance: VANCOMYCIN
     Indication: RENAL TRANSPLANT
     Dosage: 1 G, Q24H
     Route: 042

REACTIONS (1)
  - Treatment failure [Unknown]
